FAERS Safety Report 17502769 (Version 1)
Quarter: 2020Q1

REPORT INFORMATION
  Report Type: Spontaneous
  Country: US (occurrence: US)
  Receive Date: 20200305
  Receipt Date: 20200305
  Transmission Date: 20200409
  Serious: Yes (Other)
  Sender: FDA-Public Use
  Company Number: US-ROCHE-2243803

PATIENT
  Sex: Female

DRUGS (1)
  1. OMALIZUMAB. [Suspect]
     Active Substance: OMALIZUMAB
     Indication: ASTHMA
     Dosage: ONGOING: UNKNOWN?MOST RECENT DOSE OF OMALIZUMAB WAS TAKEN ON 15/NOV/2018.
     Route: 058
     Dates: end: 20181115

REACTIONS (1)
  - Neoplasm malignant [Not Recovered/Not Resolved]
